FAERS Safety Report 5821739-7 (Version None)
Quarter: 2008Q3

REPORT INFORMATION
  Report Type: 
  Country: None (occurrence: None)
  Receive Date: 20080724
  Receipt Date: 20080714
  Transmission Date: 20090109
  Serious: Yes (Hospitalization, Disabling, Other)
  Sender: FDA-Public Use
  Company Number: US-PFIZER INC-2008029985

PATIENT
  Sex: Female

DRUGS (3)
  1. CELEBREX [Suspect]
     Indication: PAIN MANAGEMENT
     Route: 048
  2. CELEBREX [Suspect]
     Indication: ANALGESIC INTERVENTION SUPPORTIVE THERAPY
  3. CELEBREX [Suspect]
     Indication: BACK PAIN

REACTIONS (14)
  - AMNESIA [None]
  - ANXIETY [None]
  - BLINDNESS [None]
  - CARDIOVASCULAR DISORDER [None]
  - DEPRESSION [None]
  - EMOTIONAL DISORDER [None]
  - HEMIPARESIS [None]
  - IMPULSE-CONTROL DISORDER [None]
  - ISCHAEMIC STROKE [None]
  - MULTIPLE INJURIES [None]
  - OPTIC NERVE INJURY [None]
  - SPEECH DISORDER [None]
  - SUICIDAL IDEATION [None]
  - TRAUMATIC BRAIN INJURY [None]
